FAERS Safety Report 6237880-3 (Version None)
Quarter: 2009Q2

REPORT INFORMATION
  Report Type: 
  Country: None (occurrence: None)
  Receive Date: 20090620
  Receipt Date: 20090608
  Transmission Date: 20091009
  Serious: Yes (Hospitalization)
  Sender: FDA-Public Use
  Company Number: US-MYLANLABS-2009S1010178

PATIENT
  Age: 37 Year
  Sex: Female

DRUGS (1)
  1. MERCAPTOPURINE [Suspect]
     Indication: ACCIDENTAL OVERDOSE
     Route: 048

REACTIONS (11)
  - ACCIDENTAL OVERDOSE [None]
  - ALOPECIA [None]
  - CHEST PAIN [None]
  - EYELID PTOSIS [None]
  - FATIGUE [None]
  - HEADACHE [None]
  - HEPATIC ENZYME ABNORMAL [None]
  - NAUSEA [None]
  - NIGHT SWEATS [None]
  - PAIN [None]
  - VOMITING [None]
